FAERS Safety Report 5509715-5 (Version None)
Quarter: 2007Q4

REPORT INFORMATION
  Report Type: 
  Country: None (occurrence: None)
  Receive Date: 20071108
  Receipt Date: 20071102
  Transmission Date: 20080405
  Serious: Yes (Hospitalization, Other)
  Sender: FDA-Public Use
  Company Number: DE-ELI_LILLY_AND_COMPANY-DE200710004703

PATIENT
  Age: 45 Year
  Sex: Male

DRUGS (2)
  1. OLANZAPINE [Suspect]
     Indication: OBSESSIVE-COMPULSIVE DISORDER
     Dosage: 5 MG, IRREGULAR INTAKE
     Route: 048
     Dates: start: 20070901, end: 20070101
  2. ALLOPURINOL [Concomitant]
     Indication: GOUT

REACTIONS (1)
  - HYPERSENSITIVITY [None]
